FAERS Safety Report 8259189-9 (Version None)
Quarter: 2012Q2

REPORT INFORMATION
  Report Type: 
  Country: None (occurrence: None)
  Receive Date: 20120403
  Receipt Date: 20120403
  Transmission Date: 20120825
  Serious: Yes (Life-Threatening, Other)
  Sender: FDA-Public Use
  Company Number: None

PATIENT
  Sex: Male
  Weight: 102.0593 kg

DRUGS (4)
  1. METOPROLOL TARTRATE [Suspect]
     Indication: BLOOD PRESSURE
     Dosage: 50 MG 1 A DAY
  2. METOPROLOL TARTRATE [Suspect]
     Indication: CARDIAC DISORDER
     Dosage: 50 MG 1 A DAY
  3. ISOSORBIDE MONONITRATE [Suspect]
     Indication: CARDIAC DISORDER
     Dosage: 30 MG 1 A DAY
  4. ISOSORBIDE MONONITRATE [Suspect]
     Indication: BLOOD PRESSURE
     Dosage: 30 MG 1 A DAY

REACTIONS (2)
  - FEELING ABNORMAL [None]
  - BLOOD PRESSURE INCREASED [None]
